FAERS Safety Report 9153659 (Version 2)
Quarter: 2013Q2

REPORT INFORMATION
  Report Type: Spontaneous
  Country: US (occurrence: US)
  Receive Date: 20130311
  Receipt Date: 20130405
  Transmission Date: 20140414
  Serious: Yes (Other)
  Sender: FDA-Public Use
  Company Number: US-BAYER-2013-029448

PATIENT
  Age: 21 Year
  Sex: Female
  Weight: 148.4 kg

DRUGS (1)
  1. MIRENA [Suspect]
     Dosage: 20 MCG/24HR, CONT
     Route: 015
     Dates: start: 20120307, end: 20130220

REACTIONS (11)
  - Weight increased [None]
  - Malaise [None]
  - Genital haemorrhage [None]
  - Malaise [None]
  - Abdominal distension [None]
  - Headache [None]
  - Menstruation irregular [None]
  - Muscle spasms [None]
  - Fatigue [None]
  - Insomnia [None]
  - Device dislocation [None]
